FAERS Safety Report 16651485 (Version 2)
Quarter: 2019Q3

REPORT INFORMATION
  Report Type: Spontaneous
  Country: US (occurrence: US)
  Receive Date: 20190731
  Receipt Date: 20190806
  Transmission Date: 20191004
  Serious: Yes (Hospitalization, Other)
  Sender: FDA-Public Use
  Company Number: US-PFIZER INC-2019321511

PATIENT
  Age: 35 Year
  Sex: Female

DRUGS (11)
  1. VARENICLINE [Concomitant]
     Active Substance: VARENICLINE
     Dosage: UNK
  2. GABAPENTIN. [Suspect]
     Active Substance: GABAPENTIN
     Indication: EPILEPSY
     Dosage: 24 G, UNK
     Route: 048
     Dates: start: 2011, end: 2014
  3. PREGABALIN. [Concomitant]
     Active Substance: PREGABALIN
     Indication: EPILEPSY
     Dosage: UNK
  4. ARIPIPRAZOLE. [Concomitant]
     Active Substance: ARIPIPRAZOLE
     Dosage: UNK
  5. GABAPENTIN. [Suspect]
     Active Substance: GABAPENTIN
     Dosage: UNK, STARTED TAKING LARGER DOSES THAN PRESCRIBED
     Route: 048
     Dates: start: 2014
  6. GABAPENTIN. [Suspect]
     Active Substance: GABAPENTIN
     Dosage: 24 G, SINGLE (INGESTION)
     Route: 048
  7. DESVENLAFAXINE. [Concomitant]
     Active Substance: DESVENLAFAXINE
     Dosage: UNK
  8. BUSPIRONE [Concomitant]
     Active Substance: BUSPIRONE HYDROCHLORIDE
     Dosage: UNK
  9. MIRTAZAPINE. [Concomitant]
     Active Substance: MIRTAZAPINE
     Dosage: UNK
  10. VALPROIC ACID. [Concomitant]
     Active Substance: VALPROIC ACID
     Indication: EPILEPSY
     Dosage: UNK
  11. DIVALPROEX [Concomitant]
     Active Substance: DIVALPROEX SODIUM
     Dosage: UNK

REACTIONS (14)
  - Chills [Unknown]
  - Hyperhidrosis [Unknown]
  - Withdrawal syndrome [Unknown]
  - Fatigue [Unknown]
  - Depression [Unknown]
  - Tremor [Unknown]
  - Intentional overdose [Unknown]
  - Euphoric mood [Unknown]
  - Drug abuse [Unknown]
  - Anxiety [Unknown]
  - Disorientation [Unknown]
  - Agitation [Unknown]
  - Nausea [Unknown]
  - Suicidal ideation [Unknown]
